FAERS Safety Report 6402935-7 (Version None)
Quarter: 2009Q4

REPORT INFORMATION
  Report Type: 
  Country: None (occurrence: None)
  Receive Date: 20091014
  Receipt Date: 20091014
  Transmission Date: 20100525
  Serious: Yes (Other)
  Sender: FDA-Public Use
  Company Number: None

PATIENT
  Sex: Female
  Weight: 71.6683 kg

DRUGS (1)
  1. PREDNISONE TAB [Suspect]
     Indication: SINUSITIS
     Dosage: 10 MG 4 TABS MOUTH
     Route: 048
     Dates: start: 20090519, end: 20090531

REACTIONS (2)
  - AGEUSIA [None]
  - ANOSMIA [None]
